FAERS Safety Report 6468256-1 (Version None)
Quarter: 2009Q4

REPORT INFORMATION
  Report Type: 
  Country: None (occurrence: None)
  Receive Date: 20091124
  Receipt Date: 20091109
  Transmission Date: 20100525
  Serious: No
  Sender: FDA-Public Use
  Company Number: B0605523A

PATIENT
  Age: 45 Year

DRUGS (10)
  1. LAMOTRIGINE [Suspect]
     Dosage: 200 MG / TWICE PER DAY /
  2. RISPERIDONE [Concomitant]
  3. CYCLOBENZAPRINE HCL [Concomitant]
  4. CLONAZEPAM [Concomitant]
  5. OXYCODONE HCL [Concomitant]
  6. FOLIC ACID [Concomitant]
  7. CLOPIDOGREL [Concomitant]
  8. INSULIN [Concomitant]
  9. ZOLPIDEM [Concomitant]
  10. FRUSEMIDE [Concomitant]

REACTIONS (3)
  - DRUG WITHDRAWAL SYNDROME [None]
  - IRRITABILITY [None]
  - THINKING ABNORMAL [None]
